FAERS Safety Report 24761743 (Version 5)
Quarter: 2025Q4

REPORT INFORMATION
  Report Type: Spontaneous
  Country: JP (occurrence: JP)
  Receive Date: 20241220
  Receipt Date: 20251126
  Transmission Date: 20260118
  Serious: Yes (Hospitalization, Other)
  Sender: ABBVIE
  Company Number: JP-ABBVIE-5959512

PATIENT
  Age: 37 Year
  Sex: Female
  Weight: 59 kg

DRUGS (3)
  1. HUMIRA [Suspect]
     Active Substance: ADALIMUMAB
     Indication: Crohn^s disease
     Dosage: FORM STRENGTH: 40 MILLIGRAMS. SOLUTION FOR INJECTION IN PRE-FILLED SYRINGE
     Route: 058
     Dates: start: 201409
  2. LORATADINE [Concomitant]
     Active Substance: LORATADINE
     Indication: Allergy prophylaxis
     Dosage: AT THE TIME OF HUMIRA ADMINISTRATION , FORM STRENGTH: 10 MG.
     Route: 048
  3. MESALAMINE [Concomitant]
     Active Substance: MESALAMINE
     Indication: Crohn^s disease
     Dosage: TIME INTERVAL: 0.125 DAYS: FORM STRENGTH: 250 MG, 2000 MILLIGRAM.
     Route: 048
     Dates: start: 2014

REACTIONS (6)
  - Inflammatory pseudotumour [Recovered/Resolved]
  - Hydronephrosis [Recovered/Resolved]
  - Endometriosis [Recovered/Resolved]
  - Endometriosis [Unknown]
  - Cystitis [Unknown]
  - Tumour marker abnormal [Unknown]

NARRATIVE: CASE EVENT DATE: 20171218
